FAERS Safety Report 4751024-6 (Version None)
Quarter: 2005Q3

REPORT INFORMATION
  Report Type: 
  Country: None (occurrence: None)
  Receive Date: 20050822
  Receipt Date: 20050805
  Transmission Date: 20060218
  Serious: Yes (Other)
  Sender: FDA-Public Use
  Company Number: 2005BI008922

PATIENT
  Age: 55 Year
  Sex: Female
  Weight: 90.7194 kg

DRUGS (4)
  1. TYSABRI [Suspect]
     Indication: MULTIPLE SCLEROSIS
     Dosage: 300 MG; QM; IV
     Route: 042
     Dates: start: 20050216, end: 20050216
  2. SYNTHROID [Concomitant]
  3. LIPITOR [Concomitant]
  4. PROVIGIL [Concomitant]

REACTIONS (8)
  - ASTHMA [None]
  - ATRIAL FLUTTER [None]
  - CHEST WALL PAIN [None]
  - COUGH [None]
  - DYSPHONIA [None]
  - DYSPNOEA [None]
  - FATIGUE [None]
  - SUPRAVENTRICULAR TACHYCARDIA [None]
